FAERS Safety Report 7080305-9 (Version None)
Quarter: 2010Q4

REPORT INFORMATION
  Report Type: 
  Country: None (occurrence: None)
  Receive Date: 20101103
  Receipt Date: 20101020
  Transmission Date: 20110411
  Serious: Yes (Hospitalization)
  Sender: FDA-Public Use
  Company Number: DE-RANBAXY-2010RR-37564

PATIENT
  Age: 21 Year
  Sex: Male
  Weight: 108 kg

DRUGS (5)
  1. TOPIRAMATE [Suspect]
     Indication: SUICIDE ATTEMPT
     Dosage: 200 MG, UNK
     Route: 048
  2. TOPIRAMATE [Concomitant]
     Dosage: 400 MG, UNK
  3. TOPIRAMATE [Concomitant]
     Dosage: 100 MG, UNK
  4. TOPIRAMATE [Concomitant]
     Dosage: 200 MG, QD
  5. TOPIRAMATE [Concomitant]
     Dosage: 200 MG, BID

REACTIONS (9)
  - APHASIA [None]
  - CONFUSIONAL STATE [None]
  - DISORIENTATION [None]
  - MEMORY IMPAIRMENT [None]
  - OVERDOSE [None]
  - SOMNOLENCE [None]
  - STATUS EPILEPTICUS [None]
  - SUICIDE ATTEMPT [None]
  - UNRESPONSIVE TO STIMULI [None]
